FAERS Safety Report 5037297-3 (Version None)
Quarter: 2006Q2

REPORT INFORMATION
  Report Type: 
  Country: None (occurrence: None)
  Receive Date: 20060613
  Receipt Date: 20050502
  Transmission Date: 20061013
  Serious: Yes (Hospitalization, Other)
  Sender: FDA-Public Use
  Company Number: 2005-01535

PATIENT
  Age: 50 Year
  Sex: Female
  Weight: 135.6 kg

DRUGS (20)
  1. INFED [Suspect]
     Indication: IRON DEFICIENCY ANAEMIA
     Dosage: 100 MG, 1/WEEK, INTRAVENOUS
     Route: 042
     Dates: start: 20050421, end: 20050421
  2. HUMALOG [Concomitant]
  3. AVANDIA [Concomitant]
  4. METFORMIN [Concomitant]
  5. GLYBURIDE [Concomitant]
  6. HYDROCHLORIDE [Concomitant]
  7. PRINIVIL [Concomitant]
  8. LIPITOR [Concomitant]
  9. LEXAPRO [Concomitant]
  10. PREMARIN [Concomitant]
  11. NEXIUM [Concomitant]
  12. VICODIN [Concomitant]
  13. ZYRTEC [Concomitant]
  14. ZETIA [Concomitant]
  15. ADVAIR (SALMETEROL XINAFOATE, FLUTICASONE PROPIONATE) [Concomitant]
  16. AMITRIPTYLINE HCL [Concomitant]
  17. CROMOGEN (CROMOGLICATE SODIUM) [Concomitant]
  18. ASPIRIN [Concomitant]
  19. FLONASE [Concomitant]
  20. SYNTHROID [Concomitant]

REACTIONS (5)
  - DIZZINESS [None]
  - FLUSHING [None]
  - HYPERSENSITIVITY [None]
  - TACHYCARDIA [None]
  - URTICARIA [None]
